FAERS Safety Report 12632359 (Version 2)
Quarter: 2016Q3

REPORT INFORMATION
  Report Type: Spontaneous
  Country: US (occurrence: US)
  Receive Date: 20160808
  Receipt Date: 20160808
  Transmission Date: 20161109
  Serious: No
  Sender: FDA-Public Use
  Company Number: US-BEH-2016062624

PATIENT
  Sex: Female
  Weight: 81 kg

DRUGS (15)
  1. HIZENTRA [Suspect]
     Active Substance: HUMAN IMMUNOGLOBULIN G
     Route: 058
  2. HIZENTRA [Suspect]
     Active Substance: HUMAN IMMUNOGLOBULIN G
     Route: 058
  3. HIZENTRA [Suspect]
     Active Substance: HUMAN IMMUNOGLOBULIN G
     Indication: SELECTIVE IGG SUBCLASS DEFICIENCY
     Route: 058
     Dates: start: 20130502
  4. DIPHENHYDRAMINE. [Concomitant]
     Active Substance: DIPHENHYDRAMINE
  5. LIDOCAINE. [Concomitant]
     Active Substance: LIDOCAINE
  6. EPIPEN [Concomitant]
     Active Substance: EPINEPHRINE
  7. ACETAMINOPHEN. [Concomitant]
     Active Substance: ACETAMINOPHEN
  8. LISINOPRIL. [Concomitant]
     Active Substance: LISINOPRIL
  9. HYDROCHLORTHIAZIDE [Concomitant]
     Active Substance: HYDROCHLOROTHIAZIDE
  10. NORVASC [Concomitant]
     Active Substance: AMLODIPINE BESYLATE
  11. ALBUTEROL. [Concomitant]
     Active Substance: ALBUTEROL
  12. OMNARIS [Concomitant]
     Active Substance: CICLESONIDE
  13. ASTEPRO [Concomitant]
     Active Substance: AZELASTINE HYDROCHLORIDE
  14. SYMBICORT [Concomitant]
     Active Substance: BUDESONIDE\FORMOTEROL FUMARATE DIHYDRATE
  15. PROAIR HFA [Concomitant]
     Active Substance: ALBUTEROL SULFATE

REACTIONS (1)
  - Sinusitis [Unknown]
